FAERS Safety Report 9738605 (Version 2)
Quarter: 2014Q1

REPORT INFORMATION
  Report Type: Report from Study
  Country: US (occurrence: US)
  Receive Date: 20131209
  Receipt Date: 20140310
  Transmission Date: 20141002
  Serious: Yes (Hospitalization)
  Sender: FDA-Public Use
  Company Number: US-ROCHE-1313786

PATIENT
  Age: 50 Year
  Sex: Female
  Weight: 110 kg

DRUGS (27)
  1. BEVACIZUMAB [Suspect]
     Indication: LUNG NEOPLASM MALIGNANT
     Dosage: ON DAY 1 OF 21 DAY CYCLE
     Route: 065
     Dates: start: 20110124, end: 20110411
  2. BEVACIZUMAB [Suspect]
     Dosage: LAST  DOSE OF BEVACIZUMAB 1650MG GIVEN PRIOR TO SAE ON 21/NOV/2013
     Route: 042
     Dates: start: 20110510
  3. PEMETREXED [Suspect]
     Indication: LUNG NEOPLASM MALIGNANT
     Dosage: ON DAY 1 OF 21 DAY CYCLE
     Route: 065
     Dates: start: 20110124, end: 20110411
  4. PEMETREXED [Suspect]
     Dosage: LAST  DOSE OF PEMETREXED 1150MG GIVEN PRIOR TO SAE ON 21/NOV/2013
     Route: 065
     Dates: start: 20110510
  5. CARBOPLATIN [Suspect]
     Indication: LUNG NEOPLASM MALIGNANT
     Dosage: AUC 6.  ON DAY 1 OF 21 DAY CYCLE
     Route: 065
     Dates: start: 20110124, end: 20110411
  6. ALBUTEROL NEBULIZER [Concomitant]
     Dosage: EVERY 4 HOURS AS NEEDED
     Route: 065
     Dates: start: 20120727
  7. METOPROLOL SUCCINATE [Concomitant]
     Route: 065
     Dates: start: 20110223
  8. LASIX [Concomitant]
     Route: 048
     Dates: start: 20131122
  9. MS CONTIN [Concomitant]
     Route: 048
  10. OXYCODONE [Concomitant]
     Dosage: EVERY 4-6 HOURS AS NEEDED
     Route: 048
  11. MUCINEX [Concomitant]
     Dosage: 120/1200 MG EVERY 12 HOURS AS NEEDED
     Route: 065
     Dates: start: 20120727
  12. VITAMIN B12 [Concomitant]
     Route: 030
  13. ZOFRAN [Concomitant]
     Dosage: AS NEEDED
     Route: 048
  14. NEXIUM [Concomitant]
     Route: 048
  15. FLEXERIL (UNITED STATES) [Concomitant]
     Dosage: AS NEEDED
     Route: 048
  16. ASPIRIN [Concomitant]
     Route: 048
  17. KLONOPIN [Concomitant]
     Dosage: EVERY NIGHT
     Route: 048
  18. PHENERGAN [Concomitant]
     Dosage: EVERY 4 TO 6 HRS AS NEEDED
     Route: 048
  19. K-DUR [Concomitant]
     Route: 048
     Dates: start: 20121005
  20. CYMBALTA [Concomitant]
     Route: 048
     Dates: start: 20130422
  21. BIOTIN [Concomitant]
     Route: 048
  22. LORAZEPAM [Concomitant]
     Dosage: AS NEEDED
     Route: 048
  23. MECLIZINE [Concomitant]
     Route: 048
  24. ZOCOR [Concomitant]
     Dosage: EVERY NIGHT
     Route: 048
     Dates: start: 20130830
  25. AVALIDE [Concomitant]
     Dosage: DOSE 300/12.5
     Route: 048
     Dates: start: 20130830
  26. DEXAMETHASONE (ORAL) [Concomitant]
     Dosage: 4MG ON THE DAY BEFORE, DAY OF AND  DAY AFTER CHEMOTHERAPY
     Route: 048
  27. THERA TEARS [Concomitant]

REACTIONS (4)
  - Pneumonia [Unknown]
  - Asthenia [Unknown]
  - Hypophagia [Unknown]
  - Cough [Unknown]
